FAERS Safety Report 5117887-X (Version None)
Quarter: 2006Q3

REPORT INFORMATION
  Report Type: 
  Country: None (occurrence: None)
  Receive Date: 20060926
  Receipt Date: 20060920
  Transmission Date: 20061208
  Serious: Yes (Hospitalization)
  Sender: FDA-Public Use
  Company Number: 2006BI012364

PATIENT
  Age: 29 Year
  Sex: Male

DRUGS (7)
  1. NATALIZUMAB                  (NATALIZUMAB) [Suspect]
     Indication: MULTIPLE SCLEROSIS
     Dosage: IV
     Route: 042
     Dates: start: 20060818
  2. LAMOTRIGINE [Concomitant]
  3. PHENYTOIN [Concomitant]
  4. CLONAZEPAM [Concomitant]
  5. OXCARBAZEPINE [Concomitant]
  6. KEPRA [Concomitant]
  7. SEROQUEL [Concomitant]

REACTIONS (4)
  - AGITATION [None]
  - CELLULITIS [None]
  - CONFUSIONAL STATE [None]
  - STATUS EPILEPTICUS [None]
